FAERS Safety Report 23772323 (Version 1)
Quarter: 2024Q2

REPORT INFORMATION
  Report Type: Spontaneous
  Country: IT (occurrence: IT)
  Receive Date: 20240423
  Receipt Date: 20240423
  Transmission Date: 20240716
  Serious: Yes (Hospitalization, Other)
  Sender: FDA-Public Use
  Company Number: IT-HIKMA PHARMACEUTICALS-IT-H14001-24-03113

PATIENT
  Age: 21 Year
  Sex: Female

DRUGS (3)
  1. EPIRUBICIN [Suspect]
     Active Substance: EPIRUBICIN
     Indication: Soft tissue sarcoma
     Dosage: 84.5 MILLIGRAM
     Route: 042
     Dates: start: 20240307, end: 20240308
  2. IFOSFAMIDE [Suspect]
     Active Substance: IFOSFAMIDE
     Indication: Soft tissue sarcoma
     Dosage: 4225 MILLIGRAM
     Route: 042
     Dates: start: 20240307, end: 20240309
  3. MESNA [Concomitant]
     Active Substance: MESNA
     Indication: Product used for unknown indication
     Dosage: UNK
     Route: 065

REACTIONS (3)
  - Pancytopenia [Recovering/Resolving]
  - Cystitis haemorrhagic [Recovering/Resolving]
  - Strangury [Recovering/Resolving]

NARRATIVE: CASE EVENT DATE: 20240315
